FAERS Safety Report 10146095 (Version 1)
Quarter: 2014Q2

REPORT INFORMATION
  Report Type: Spontaneous
  Country: TR (occurrence: None)
  Receive Date: 20140429
  Receipt Date: 20140429
  Transmission Date: 20141212
  Serious: Yes (Death)
  Sender: FDA-Public Use
  Company Number: IPC201404-000191

PATIENT
  Age: 56 Year
  Sex: 0

DRUGS (1)
  1. METFORMIN HYDROCHLORIDE [Suspect]

REACTIONS (1)
  - Haemolytic anaemia [None]
